FAERS Safety Report 7961318-9 (Version None)
Quarter: 2011Q4

REPORT INFORMATION
  Report Type: 
  Country: None (occurrence: None)
  Receive Date: 20111202
  Receipt Date: 20111122
  Transmission Date: 20120403
  Serious: Yes (Disabling, Other)
  Sender: FDA-Public Use
  Company Number: 2011MA003054

PATIENT
  Sex: Female
  Weight: 63.5036 kg

DRUGS (26)
  1. TIZANIDINE HCL [Concomitant]
  2. TRAZODONE HCL [Concomitant]
  3. PROTONIX [Concomitant]
  4. IBUPROFEN [Concomitant]
  5. PRILOSEC [Concomitant]
  6. CHANTIX [Concomitant]
  7. VOLTAREN [Concomitant]
  8. LIDODERM [Concomitant]
  9. LYRICA [Concomitant]
  10. METOCLOPRAMIDE HCL [Suspect]
     Indication: IMPAIRED GASTRIC EMPTYING
     Dosage: 10 MG;TID;PO
     Route: 048
     Dates: start: 20070906, end: 20091130
  11. AMOXICILLIN [Concomitant]
  12. PLAQUENIL [Concomitant]
  13. EFFEXOR [Concomitant]
  14. STEROID INJECTION [Concomitant]
  15. NEURONTIN [Concomitant]
  16. LODINE [Concomitant]
  17. L-ARGININE [Concomitant]
  18. FOSAMAX [Concomitant]
  19. BUPROPION HCL [Concomitant]
  20. PROTONIX [Concomitant]
  21. ALLI [Concomitant]
  22. CALCIUM [Concomitant]
  23. TOPAMAX [Concomitant]
  24. TRAMADOL HCL [Concomitant]
  25. DAYPRO [Concomitant]
  26. KLONOPIN [Concomitant]

REACTIONS (43)
  - AKATHISIA [None]
  - PROTRUSION TONGUE [None]
  - MUSCULOSKELETAL DISORDER [None]
  - OESOPHAGITIS [None]
  - DYSTONIA [None]
  - MOVEMENT DISORDER [None]
  - LICHEN PLANUS [None]
  - OESOPHAGEAL SPASM [None]
  - SPINAL OSTEOARTHRITIS [None]
  - EXTRAPYRAMIDAL DISORDER [None]
  - TEMPOROMANDIBULAR JOINT SYNDROME [None]
  - MALOCCLUSION [None]
  - PAIN IN EXTREMITY [None]
  - MYOFASCIAL PAIN SYNDROME [None]
  - FIBROMYALGIA [None]
  - ROAD TRAFFIC ACCIDENT [None]
  - INTERVERTEBRAL DISC PROTRUSION [None]
  - IMPAIRED GASTRIC EMPTYING [None]
  - OESOPHAGEAL PAPILLOMA [None]
  - ECONOMIC PROBLEM [None]
  - TENDONITIS [None]
  - TENOSYNOVITIS [None]
  - PARAESTHESIA [None]
  - WEIGHT DECREASED [None]
  - NEUROPATHY PERIPHERAL [None]
  - EMOTIONAL DISORDER [None]
  - INJURY [None]
  - CARPAL TUNNEL SYNDROME [None]
  - CERVICOBRACHIAL SYNDROME [None]
  - ROTATOR CUFF SYNDROME [None]
  - GASTROOESOPHAGEAL REFLUX DISEASE [None]
  - OSTEOPOROSIS [None]
  - GRIMACING [None]
  - DYSKINESIA [None]
  - DYSPHAGIA [None]
  - MUSCULOSKELETAL CHEST PAIN [None]
  - MUSCULOSKELETAL PAIN [None]
  - OESOPHAGEAL POLYP [None]
  - TREMOR [None]
  - RESTLESS LEGS SYNDROME [None]
  - TOBACCO ABUSE [None]
  - OSTEOARTHRITIS [None]
  - BLOOD CHOLESTEROL INCREASED [None]
